FAERS Safety Report 13481437 (Version 1)
Quarter: 2017Q2

REPORT INFORMATION
  Report Type: Spontaneous
  Country: NL (occurrence: NL)
  Receive Date: 20170425
  Receipt Date: 20170425
  Transmission Date: 20170830
  Serious: Yes (Other)
  Sender: FDA-Public Use
  Company Number: PHHY2017NL060707

PATIENT
  Age: 64 Year
  Sex: Male
  Weight: 79 kg

DRUGS (6)
  1. CICLOSPORIN [Suspect]
     Active Substance: CYCLOSPORINE
     Indication: APLASTIC ANAEMIA
     Dosage: 150 MG, BID
     Route: 065
     Dates: start: 20161221
  2. MACROGOL [Concomitant]
     Active Substance: POLYETHYLENE GLYCOLS
     Indication: PRODUCT USED FOR UNKNOWN INDICATION
     Dosage: 1 DF, QD
     Route: 065
     Dates: start: 20170117
  3. FOLIC ACID. [Concomitant]
     Active Substance: FOLIC ACID
     Indication: SUPPORTIVE CARE
     Dosage: 5 MG, QD
     Route: 065
     Dates: start: 20161221
  4. CICLOSPORIN [Suspect]
     Active Substance: CYCLOSPORINE
     Dosage: 75 MG, BID
     Route: 065
     Dates: start: 20170309
  5. ATGAM [Suspect]
     Active Substance: EQUINE THYMOCYTE IMMUNE GLOBULIN
     Indication: APLASTIC ANAEMIA
     Dosage: UNK
     Route: 065
     Dates: start: 20161221, end: 20161221
  6. PANTOPRAZOL [Concomitant]
     Active Substance: PANTOPRAZOLE SODIUM
     Indication: ANTACID THERAPY
     Dosage: 40 MG, QD
     Route: 065
     Dates: start: 20170117

REACTIONS (2)
  - Product use in unapproved indication [Unknown]
  - Hepatitis E [Recovering/Resolving]

NARRATIVE: CASE EVENT DATE: 20170310
